FAERS Safety Report 8917774 (Version 1)
Quarter: 2012Q4

REPORT INFORMATION
  Report Type: 
  Country: DE (occurrence: DE)
  Receive Date: 20121120
  Receipt Date: 20121120
  Transmission Date: 20130627
  Serious: Yes (Other)
  Sender: FDA-Public Use
  Company Number: DE-US-EMD SERONO, INC.-7174984

PATIENT
  Sex: Female
  Weight: 52 kg

DRUGS (1)
  1. REBIF [Suspect]
     Indication: MULTIPLE SCLEROSIS
     Route: 058
     Dates: start: 201003, end: 20121115

REACTIONS (2)
  - Expanded disability status scale score increased [Not Recovered/Not Resolved]
  - Neutralising antibodies positive [Unknown]
